FAERS Safety Report 8271319-1 (Version None)
Quarter: 2012Q2

REPORT INFORMATION
  Report Type: 
  Country: None (occurrence: None)
  Receive Date: 20120410
  Receipt Date: 20111228
  Transmission Date: 20120825
  Serious: No
  Sender: FDA-Public Use
  Company Number: US-NOVEN-11US003850

PATIENT
  Age: 30 Year
  Sex: Female

DRUGS (4)
  1. FENTANYL CITRATE [Suspect]
     Indication: NECK PAIN
     Dosage: 100 MCG/HR,  Q 72 HOURS
     Route: 062
  2. FENTANYL CITRATE [Suspect]
     Indication: BACK PAIN
  3. FENTANYL CITRATE [Concomitant]
     Dosage: 800 MG, 2 LOZENGES DAILY
     Route: 048
  4. FENTANYL CITRATE [Concomitant]

REACTIONS (2)
  - DRUG ADMINISTRATION ERROR [None]
  - PRODUCT QUALITY ISSUE [None]
